FAERS Safety Report 23274124 (Version 1)
Quarter: 2023Q4

REPORT INFORMATION
  Report Type: Spontaneous
  Country: ES (occurrence: ES)
  Receive Date: 20231208
  Receipt Date: 20231208
  Transmission Date: 20240110
  Serious: Yes (Hospitalization, Other)
  Sender: FDA-Public Use
  Company Number: ES-AEMPS-1455931

PATIENT
  Age: 90 Year
  Sex: Male

DRUGS (3)
  1. RISPERIDONE [Suspect]
     Active Substance: RISPERIDONE
     Indication: Product used for unknown indication
     Dosage: UNK
     Route: 048
     Dates: start: 20231020, end: 20231021
  2. ACETAMINOPHEN [Suspect]
     Active Substance: ACETAMINOPHEN
     Indication: Product used for unknown indication
     Dosage: 2 GRAM, 3 TIMES A DAY
     Route: 048
     Dates: start: 20231020, end: 20231021
  3. QUETIAPINE [Suspect]
     Active Substance: QUETIAPINE
     Indication: Product used for unknown indication
     Dosage: UNK
     Route: 048
     Dates: start: 20231020, end: 20231021

REACTIONS (3)
  - Acute kidney injury [Unknown]
  - Somnolence [Unknown]
  - Product administration error [Unknown]

NARRATIVE: CASE EVENT DATE: 20231020
